FAERS Safety Report 6201553-3 (Version None)
Quarter: 2009Q2

REPORT INFORMATION
  Report Type: 
  Country: None (occurrence: None)
  Receive Date: 20090526
  Receipt Date: 20090521
  Transmission Date: 20091009
  Serious: Yes (Other)
  Sender: FDA-Public Use
  Company Number: JP-BAYER-200813092BYL

PATIENT
  Age: 67 Year
  Sex: Male
  Weight: 68 kg

DRUGS (10)
  1. NEXAVAR [Suspect]
     Indication: RENAL CELL CARCINOMA STAGE IV
     Dosage: TOTAL DAILY DOSE: 800 MG  UNIT DOSE: 200 MG
     Route: 048
     Dates: start: 20080616
  2. NEXAVAR [Suspect]
     Dosage: UNIT DOSE: 200 MG
     Route: 048
     Dates: start: 20080714, end: 20080720
  3. NEXAVAR [Suspect]
     Dosage: UNIT DOSE: 200 MG
     Route: 048
     Dates: start: 20080903, end: 20081027
  4. NEXAVAR [Suspect]
     Route: 048
     Dates: start: 20090401
  5. NEXAVAR [Suspect]
     Dosage: UNIT DOSE: 200 MG
     Route: 048
     Dates: start: 20081028, end: 20081110
  6. TAGAMET [Concomitant]
     Route: 048
     Dates: start: 20031201
  7. CHOLEBRINE [Concomitant]
     Route: 048
     Dates: start: 20040601
  8. PAXIL [Concomitant]
     Route: 048
     Dates: start: 20080806, end: 20080812
  9. PAXIL [Concomitant]
     Route: 048
     Dates: start: 20080813
  10. SUTENT [Concomitant]
     Route: 048

REACTIONS (6)
  - ANOREXIA [None]
  - DYSPHONIA [None]
  - HEPATIC FUNCTION ABNORMAL [None]
  - HYPERAMYLASAEMIA [None]
  - HYPERTENSION [None]
  - WEIGHT DECREASED [None]
